FAERS Safety Report 8760671 (Version 1)
Quarter: 2012Q4

REPORT INFORMATION
  Report Type: 
  Country: GB (occurrence: GB)
  Receive Date: 20120830
  Receipt Date: 20120830
  Transmission Date: 20130627
  Serious: Yes (Other)
  Sender: FDA-Public Use
  Company Number: GB-RANBAXY-2012R1-59323

PATIENT
  Age: 66 Year
  Sex: Female
  Weight: 73 kg

DRUGS (12)
  1. NAPROXEN [Suspect]
     Indication: PRODUCT USED FOR UNKNOWN INDICATION
     Dosage: UNK
     Route: 065
  2. ATORVASTATIN [Concomitant]
     Indication: PRODUCT USED FOR UNKNOWN INDICATION
     Dosage: UNK
     Route: 065
     Dates: start: 20120425, end: 20120523
  3. ATORVASTATIN [Concomitant]
     Dosage: UNK
     Route: 065
     Dates: start: 20120531, end: 20120628
  4. BETAHISTINE [Concomitant]
     Indication: PRODUCT USED FOR UNKNOWN INDICATION
     Dosage: UNK
     Route: 065
     Dates: start: 20120425, end: 20120523
  5. BETAHISTINE [Concomitant]
     Dosage: UNK
     Route: 065
     Dates: start: 20120531, end: 20120628
  6. GABAPENTIN [Concomitant]
     Indication: PRODUCT USED FOR UNKNOWN INDICATION
     Dosage: UNK
     Route: 065
     Dates: start: 20120425, end: 20120523
  7. GABAPENTIN [Concomitant]
     Dosage: UNK
     Route: 065
     Dates: start: 20120531, end: 20120628
  8. LEVOTHYROXINE [Concomitant]
     Indication: PRODUCT USED FOR UNKNOWN INDICATION
     Dosage: UNK
     Route: 065
     Dates: start: 20120425, end: 20120523
  9. LEVOTHYROXINE [Concomitant]
     Dosage: UNK
     Route: 065
     Dates: start: 20120531, end: 20120713
  10. TRAMADOL [Concomitant]
     Indication: PRODUCT USED FOR UNKNOWN INDICATION
     Dosage: UNK
     Route: 065
     Dates: start: 20120425, end: 20120523
  11. TRAMADOL [Concomitant]
     Dosage: UNK
     Route: 065
     Dates: start: 20120531, end: 20120713
  12. NAPROXEN [Concomitant]
     Indication: PRODUCT USED FOR UNKNOWN INDICATION
     Dosage: UNK
     Route: 065
     Dates: start: 20120615, end: 20120713

REACTIONS (1)
  - Nausea [Recovered/Resolved]
